FAERS Safety Report 16017505 (Version 1)
Quarter: 2019Q1

REPORT INFORMATION
  Report Type: Spontaneous
  Country: US (occurrence: US)
  Receive Date: 20190201
  Receipt Date: 20190201
  Transmission Date: 20190418
  Serious: Yes (Life-Threatening)
  Sender: FDA-Public Use
  Company Number: None

PATIENT
  Age: 58 Year
  Sex: Male
  Weight: 109.32 kg

DRUGS (1)
  1. REGADENOSON [Suspect]
     Active Substance: REGADENOSON
     Indication: CORONARY ARTERY DISEASE
     Route: 042
     Dates: start: 20181023

REACTIONS (2)
  - Atrioventricular block [None]
  - Cardiac arrest [None]

NARRATIVE: CASE EVENT DATE: 20181023
